FAERS Safety Report 7512171-9 (Version None)
Quarter: 2011Q2

REPORT INFORMATION
  Report Type: 
  Country: None (occurrence: None)
  Receive Date: 20110531
  Receipt Date: 20110525
  Transmission Date: 20111010
  Serious: Yes (Other)
  Sender: FDA-Public Use
  Company Number: GB-PFIZER INC-2011113738

PATIENT
  Age: 41 Year
  Sex: Female
  Weight: 60 kg

DRUGS (3)
  1. DEPO-PROVERA [Suspect]
     Dosage: UNK
     Dates: start: 20110516
  2. DEPO-PROVERA [Suspect]
     Dosage: UNK
     Dates: start: 20110217, end: 20110317
  3. DEPO-PROVERA [Suspect]
     Dosage: UNK
     Dates: start: 20110512

REACTIONS (4)
  - SYNOVITIS [None]
  - ARTHRALGIA [None]
  - OEDEMA [None]
  - PRURITUS [None]
